FAERS Safety Report 4812621-2 (Version None)
Quarter: 2005Q4

REPORT INFORMATION
  Report Type: 
  Country: None (occurrence: None)
  Receive Date: 20051028
  Receipt Date: 20041102
  Transmission Date: 20060501
  Serious: No
  Sender: FDA-Public Use
  Company Number: US-GLAXOSMITHKLINE-A0532251A

PATIENT
  Age: 65 Year

DRUGS (3)
  1. ADVAIR DISKUS 100/50 [Suspect]
     Indication: ASTHMA
     Dosage: 250MCG TWICE PER DAY
     Route: 055
     Dates: start: 20021101
  2. THEO-DUR [Concomitant]
  3. SINGULAIR [Concomitant]

REACTIONS (2)
  - DYSPNOEA [None]
  - PHARMACEUTICAL PRODUCT COMPLAINT [None]
